FAERS Safety Report 19468838 (Version 4)
Quarter: 2021Q3

REPORT INFORMATION
  Report Type: Spontaneous
  Country: DE (occurrence: DE)
  Receive Date: 20210628
  Receipt Date: 20210726
  Transmission Date: 20211014
  Serious: No
  Sender: FDA-Public Use
  Company Number: DE-ASTRAZENECA-2021A515756

PATIENT
  Sex: Male

DRUGS (1)
  1. BRIMICA GENUAIR [Suspect]
     Active Substance: ACLIDINIUM BROMIDE\FORMOTEROL FUMARATE
     Dosage: 340/12, UG
     Route: 055

REACTIONS (3)
  - Device breakage [Unknown]
  - Injury associated with device [Unknown]
  - Gingival pain [Unknown]

NARRATIVE: CASE EVENT DATE: 20210607
